FAERS Safety Report 14103412 (Version 1)
Quarter: 2017Q4

REPORT INFORMATION
  Report Type: Spontaneous
  Country: GB (occurrence: GB)
  Receive Date: 20171018
  Receipt Date: 20171018
  Transmission Date: 20180321
  Serious: Yes (Other)
  Sender: FDA-Public Use
  Company Number: GB-JNJFOC-20171013753

PATIENT
  Age: 26 Year
  Sex: Female

DRUGS (1)
  1. INFLIXIMAB, RECOMBINANT [Suspect]
     Active Substance: INFLIXIMAB
     Indication: PRODUCT USED FOR UNKNOWN INDICATION
     Dosage: 225 UNITS UNSPECIFIED
     Route: 042
     Dates: start: 20170426

REACTIONS (5)
  - Infusion related reaction [Unknown]
  - Blindness transient [Recovered/Resolved]
  - Somnolence [Unknown]
  - Disturbance in attention [Unknown]
  - Flushing [Unknown]

NARRATIVE: CASE EVENT DATE: 20170426
